FAERS Safety Report 9704462 (Version 1)
Quarter: 2013Q4

REPORT INFORMATION
  Report Type: Spontaneous
  Country: US (occurrence: US)
  Receive Date: 20131122
  Receipt Date: 20131122
  Transmission Date: 20140711
  Serious: No
  Sender: FDA-Public Use
  Company Number: US-BAYER-2013-142891

PATIENT
  Age: 86 Year
  Sex: Female
  Weight: 80.73 kg

DRUGS (4)
  1. ALEVE TABLET [Suspect]
     Indication: ARTHRITIS
     Dosage: 2 DF, BID
     Route: 048
  2. BAYER ASPIRIN REGIMEN ADULT LOW STRENGTH [Concomitant]
  3. VITAMIN D [Concomitant]
  4. CALCIUM [Concomitant]

REACTIONS (2)
  - Incorrect drug administration duration [None]
  - Extra dose administered [None]
